FAERS Safety Report 6303032-1 (Version None)
Quarter: 2009Q3

REPORT INFORMATION
  Report Type: 
  Country: None (occurrence: None)
  Receive Date: 20090810
  Receipt Date: 20090731
  Transmission Date: 20100115
  Serious: No
  Sender: FDA-Public Use
  Company Number: US-B.I. PHARMACEUTICALS,INC./RIDGEFIELD-2009-BP-08643BP

PATIENT
  Sex: Male

DRUGS (10)
  1. FLOMAX [Suspect]
     Indication: BENIGN PROSTATIC HYPERPLASIA
     Dosage: 0.4 MG
     Route: 048
     Dates: start: 20090601
  2. ARICEPT [Concomitant]
  3. LEXAPRO [Concomitant]
  4. CADUET [Concomitant]
  5. ACEON [Concomitant]
  6. CAROURA [Concomitant]
  7. PLAVIX [Concomitant]
  8. BISOPROLOL [Concomitant]
  9. AVODART [Concomitant]
  10. DAILY VITAMIN [Concomitant]

REACTIONS (2)
  - AMNESIA [None]
  - NOCTURIA [None]
